FAERS Safety Report 6825026-X (Version None)
Quarter: 2010Q3

REPORT INFORMATION
  Report Type: 
  Country: None (occurrence: None)
  Receive Date: 20100708
  Receipt Date: 20070111
  Transmission Date: 20110219
  Serious: No
  Sender: FDA-Public Use
  Company Number: US-PFIZER INC-2007001986

PATIENT
  Sex: Female
  Weight: 65.77 kg

DRUGS (6)
  1. CHANTIX [Suspect]
     Indication: SMOKING CESSATION THERAPY
     Dates: start: 20061225
  2. NICORETTE [Suspect]
     Indication: SMOKING CESSATION THERAPY
     Dates: start: 20070101
  3. NEXIUM [Concomitant]
  4. VALSARTAN [Concomitant]
     Indication: HYPERTENSION
  5. TOPROL-XL [Concomitant]
     Indication: HYPERTENSION
  6. XANAX [Concomitant]

REACTIONS (5)
  - APHONIA [None]
  - DRUG INEFFECTIVE [None]
  - DYSGEUSIA [None]
  - NAUSEA [None]
  - TOOTHACHE [None]
